FAERS Safety Report 20670280 (Version 1)
Quarter: 2022Q2

REPORT INFORMATION
  Report Type: Spontaneous
  Country: US (occurrence: None)
  Receive Date: 20220401
  Receipt Date: 20220401
  Transmission Date: 20220721
  Serious: No
  Sender: FDA-Public Use
  Company Number: None

PATIENT
  Sex: Female

DRUGS (3)
  1. DEFERASIROX [Suspect]
     Active Substance: DEFERASIROX
     Indication: Sickle cell disease
     Dosage: FREQUENCY : DAILY;?
     Route: 048
     Dates: start: 20201117
  2. DEFERASIROX [Suspect]
     Active Substance: DEFERASIROX
     Indication: Polycythaemia
  3. DEFERASIROX [Suspect]
     Active Substance: DEFERASIROX
     Indication: Double heterozygous sickling disorders

REACTIONS (2)
  - Sickle cell anaemia with crisis [None]
  - Hypersensitivity [None]
